FAERS Safety Report 12665609 (Version 1)
Quarter: 2016Q3

REPORT INFORMATION
  Report Type: Spontaneous
  Country: NL (occurrence: NL)
  Receive Date: 20160818
  Receipt Date: 20160818
  Transmission Date: 20161109
  Serious: Yes (Other)
  Sender: FDA-Public Use
  Company Number: NL-TAKEDA-2016TUS014613

PATIENT
  Age: 82 Year
  Sex: Male
  Weight: 76 kg

DRUGS (11)
  1. SPIRONOLACTON [Concomitant]
     Active Substance: SPIRONOLACTONE
     Dosage: 12.5 MG, QD
     Route: 048
     Dates: start: 20151214
  2. ISOSORBIDE MONONITRATE. [Concomitant]
     Active Substance: ISOSORBIDE MONONITRATE
     Dosage: 50 MG, QD
     Route: 048
     Dates: start: 20151214
  3. COLECALCIFEROL [Concomitant]
     Active Substance: CHOLECALCIFEROL
     Dosage: 0.033 ML, QD
     Route: 048
     Dates: start: 20151214
  4. METFORMIN [Concomitant]
     Active Substance: METFORMIN HYDROCHLORIDE
     Dosage: 500 MG, BID
     Route: 048
     Dates: start: 20151214
  5. ADENURIC [Suspect]
     Active Substance: FEBUXOSTAT
     Indication: GOUTY TOPHUS
     Dosage: 40 MG, QD
     Route: 048
     Dates: start: 20160801, end: 20160803
  6. ACENOCOUMAROL [Concomitant]
     Active Substance: ACENOCOUMAROL
     Dosage: UNK
     Route: 048
     Dates: start: 20151214
  7. TOLBUTAMIDE. [Concomitant]
     Active Substance: TOLBUTAMIDE
     Dosage: UNK
     Route: 048
     Dates: start: 20151214
  8. BUMETANIDE. [Concomitant]
     Active Substance: BUMETANIDE
     Dosage: 1 MG, BID
     Route: 048
     Dates: start: 20151214
  9. FERRO                              /00023503/ [Concomitant]
     Dosage: UNK
     Route: 048
     Dates: start: 20151214
  10. VALSARTAN. [Concomitant]
     Active Substance: VALSARTAN
     Dosage: 40 MG, BID
     Route: 048
     Dates: start: 20151214
  11. BISOPROLOL [Concomitant]
     Active Substance: BISOPROLOL
     Dosage: 2.5 MG, QD
     Route: 048
     Dates: start: 20151214

REACTIONS (4)
  - Malaise [Unknown]
  - Wrong technique in product usage process [Recovered/Resolved]
  - Rash generalised [Unknown]
  - Skin exfoliation [Unknown]

NARRATIVE: CASE EVENT DATE: 20160801
